FAERS Safety Report 9788110 (Version 1)
Quarter: 2013Q4

REPORT INFORMATION
  Report Type: Spontaneous
  Country: US (occurrence: None)
  Receive Date: 20131227
  Receipt Date: 20131227
  Transmission Date: 20140711
  Serious: Yes (Hospitalization)
  Sender: FDA-Public Use
  Company Number: None

PATIENT
  Age: 56 Year
  Sex: Male
  Weight: 72.12 kg

DRUGS (15)
  1. VANCOMYCIN [Suspect]
     Indication: CELLULITIS
     Dosage: RECENT?1250 MG ?Q8HR?IVPB
  2. VANCOMYCIN [Suspect]
     Indication: OSTEOMYELITIS
     Dosage: RECENT?1250 MG ?Q8HR?IVPB
  3. DAPTOMYCIN [Suspect]
     Indication: CELLULITIS
     Dosage: RECENT?6MG/KG?Q24HR?IVPB
  4. DAPTOMYCIN [Suspect]
     Indication: OSTEOMYELITIS
     Dosage: RECENT?6MG/KG?Q24HR?IVPB
  5. FLOMAX [Concomitant]
  6. SERTRALINE [Concomitant]
  7. PANTOPRAZOLE [Concomitant]
  8. ZETIA [Concomitant]
  9. VIT D3 [Concomitant]
  10. BUMEX [Concomitant]
  11. LANTUS [Concomitant]
  12. COLACE [Concomitant]
  13. NOVOLOG [Concomitant]
  14. OXYCODONE [Concomitant]
  15. ALTACE [Concomitant]

REACTIONS (8)
  - Renal failure acute [None]
  - Tubulointerstitial nephritis [None]
  - Hypersensitivity [None]
  - Nephropathy toxic [None]
  - Lung infiltration [None]
  - Eosinophilia [None]
  - Pneumonitis [None]
  - Eosinophilic pneumonia [None]
